FAERS Safety Report 4810887-6 (Version None)
Quarter: 2005Q4

REPORT INFORMATION
  Report Type: 
  Country: None (occurrence: None)
  Receive Date: 20051027
  Receipt Date: 20051013
  Transmission Date: 20060501
  Serious: Yes (Hospitalization)
  Sender: FDA-Public Use
  Company Number: FR-BOEHRINGER INGELHEIM PHARMACEUTICALS, INC.-2005-FF-00725FF

PATIENT
  Age: 104 Year
  Sex: Male

DRUGS (6)
  1. ATROVENT [Suspect]
     Route: 055
     Dates: end: 20050924
  2. ALDACTONE [Concomitant]
     Route: 048
     Dates: end: 20050924
  3. XATRAL [Concomitant]
     Route: 048
     Dates: end: 20050924
  4. LOVENOX [Concomitant]
     Route: 030
     Dates: end: 20050924
  5. DISCOTRINE [Concomitant]
     Route: 061
     Dates: end: 20050924
  6. OXEOL [Concomitant]
     Route: 048
     Dates: end: 20050924

REACTIONS (3)
  - HAEMATOMA [None]
  - INTESTINAL OBSTRUCTION [None]
  - VOMITING [None]
